FAERS Safety Report 20192825 (Version 4)
Quarter: 2022Q3

REPORT INFORMATION
  Report Type: Spontaneous
  Country: JP (occurrence: JP)
  Receive Date: 20211216
  Receipt Date: 20220714
  Transmission Date: 20221026
  Serious: Yes (Hospitalization, Other)
  Sender: FDA-Public Use
  Company Number: JP-GSKNCCC-Case-01375035_AE-52840

PATIENT

DRUGS (2)
  1. SERETIDE [Suspect]
     Active Substance: FLUTICASONE PROPIONATE\SALMETEROL XINAFOATE
     Indication: Asthma
     Dosage: 250 ?G (1 INHALATION PER DOSE), BID
     Route: 055
  2. PREDONINE [Suspect]
     Active Substance: PREDNISOLONE
     Indication: Immune system disorder
     Dosage: 5 MG/DAY
     Route: 048

REACTIONS (1)
  - Cerebrovascular accident [Unknown]
